FAERS Safety Report 24845591 (Version 1)
Quarter: 2025Q1

REPORT INFORMATION
  Report Type: Spontaneous
  Country: US (occurrence: None)
  Receive Date: 20250115
  Receipt Date: 20250115
  Transmission Date: 20250409
  Serious: Yes (Death)
  Sender: FDA-CTU
  Company Number: None

PATIENT
  Age: 68 Year
  Sex: Male

DRUGS (13)
  1. REPATHA [Suspect]
     Active Substance: EVOLOCUMAB
     Indication: Hypercholesterolaemia
     Dates: start: 20221017, end: 20241105
  2. LASIX [Concomitant]
     Active Substance: FUROSEMIDE
  3. POTASSIUM CHLORIDE [Concomitant]
     Active Substance: POTASSIUM CHLORIDE
  4. JARDIANCE [Concomitant]
     Active Substance: EMPAGLIFLOZIN
  5. PRASUGREL [Concomitant]
     Active Substance: PRASUGREL
  6. HYDROXYGHLOROQUINE [Concomitant]
  7. ALLOPURINOL [Concomitant]
     Active Substance: ALLOPURINOL
  8. SPIRONOLAGTONE [Concomitant]
  9. CARVEDILOL [Concomitant]
     Active Substance: CARVEDILOL
  10. COUMADIN [Concomitant]
     Active Substance: WARFARIN SODIUM
  11. METOLAZONE [Concomitant]
     Active Substance: METOLAZONE
  12. COLCHICINE [Concomitant]
     Active Substance: COLCHICINE
  13. TYLENOL [Concomitant]
     Active Substance: ACETAMINOPHEN

REACTIONS (1)
  - Death [None]

NARRATIVE: CASE EVENT DATE: 20241105
